FAERS Safety Report 7072188-8 (Version None)
Quarter: 2010Q4

REPORT INFORMATION
  Report Type: 
  Country: None (occurrence: None)
  Receive Date: 20101029
  Receipt Date: 20091215
  Transmission Date: 20110411
  Serious: No
  Sender: FDA-Public Use
  Company Number: A0835180A

PATIENT
  Age: 73 Year
  Sex: Female

DRUGS (1)
  1. ADVAIR DISKUS 100/50 [Suspect]
     Indication: CHRONIC OBSTRUCTIVE PULMONARY DISEASE
     Dosage: 1PUFF PER DAY
     Route: 055
     Dates: start: 20020101

REACTIONS (4)
  - FATIGUE [None]
  - MICTURITION FREQUENCY DECREASED [None]
  - MUSCULOSKELETAL PAIN [None]
  - URINE OUTPUT DECREASED [None]
